FAERS Safety Report 4376075-5 (Version None)
Quarter: 2004Q2

REPORT INFORMATION
  Report Type: 
  Country: None (occurrence: None)
  Receive Date: 20040607
  Receipt Date: 20040526
  Transmission Date: 20050107
  Serious: Yes (Other)
  Sender: FDA-Public Use
  Company Number: 2004028026

PATIENT
  Age: 76 Year
  Sex: Female
  Weight: 49 kg

DRUGS (6)
  1. NEURONTIN [Suspect]
     Indication: SEDATION
     Dosage: 300 MG (DAILY), ORAL
     Route: 048
     Dates: start: 20040324, end: 20040324
  2. BISOPROLOL FUMARATE [Concomitant]
  3. CANDESARTAN (CANDESARTAN) [Concomitant]
  4. ATORVASTATIN (ATORVASTATIN) [Concomitant]
  5. ACETYLSALICYLIC ACID SRT [Concomitant]
  6. SERTRALINE HCL [Concomitant]

REACTIONS (6)
  - BALANCE DISORDER [None]
  - DYSARTHRIA [None]
  - MOTOR DYSFUNCTION [None]
  - SEDATION [None]
  - SOMNOLENCE [None]
  - VERTIGO [None]
